FAERS Safety Report 12070574 (Version 1)
Quarter: 2016Q1

REPORT INFORMATION
  Report Type: Spontaneous
  Country: US (occurrence: US)
  Receive Date: 20160211
  Receipt Date: 20160211
  Transmission Date: 20160526
  Serious: Yes (Other)
  Sender: FDA-Public Use
  Company Number: US-BAYER-2016-023998

PATIENT
  Age: 47 Year
  Sex: Female

DRUGS (2)
  1. MIRENA [Suspect]
     Active Substance: LEVONORGESTREL
     Indication: CONTRACEPTION
     Dosage: 20 MCG/24HR, CONT
     Route: 015
     Dates: start: 201306
  2. MIRENA [Suspect]
     Active Substance: LEVONORGESTREL
     Indication: DYSMENORRHOEA

REACTIONS (9)
  - Device dislocation [None]
  - Weight increased [None]
  - Hormone level abnormal [None]
  - Hormone level abnormal [None]
  - Skin discolouration [None]
  - Feeling abnormal [None]
  - Medical device discomfort [None]
  - Breast enlargement [None]
  - Pigmentation disorder [None]

NARRATIVE: CASE EVENT DATE: 2015
